FAERS Safety Report 7472696-1 (Version None)
Quarter: 2011Q1

REPORT INFORMATION
  Report Type: 
  Country: None (occurrence: None)
  Receive Date: 20110302
  Receipt Date: 20101014
  Transmission Date: 20110831
  Serious: Yes (Other)
  Sender: FDA-Public Use
  Company Number: 163-21880-10070256

PATIENT
  Age: 59 Year
  Sex: Female

DRUGS (9)
  1. REVLIMID [Suspect]
     Indication: MULTIPLE MYELOMA
     Dosage: 25 MG, DAILY FOR 21 DAYS, PO' 25 MG, D1-21 1 28D, PO
     Route: 048
     Dates: start: 20100416
  2. REVLIMID [Suspect]
     Indication: MULTIPLE MYELOMA
     Dosage: 25 MG, DAILY FOR 21 DAYS, PO' 25 MG, D1-21 1 28D, PO
     Route: 048
     Dates: start: 20100614
  3. VELCADE [Suspect]
     Indication: MULTIPLE MYELOMA
     Dosage: 2.3 MG, DAYS 1,4 OF CYCLE 1
     Dates: start: 20100420
  4. NORVASC [Concomitant]
  5. REVLIMID [Suspect]
  6. ZOLOFT [Concomitant]
  7. VITAMIN B6 [Concomitant]
  8. DEXAMETHASONE [Concomitant]
  9. VITAMIN B12 [Concomitant]

REACTIONS (5)
  - HYPOAESTHESIA [None]
  - PARAESTHESIA [None]
  - NEUROPATHY PERIPHERAL [None]
  - SKIN DISCOLOURATION [None]
  - SYNCOPE [None]
